FAERS Safety Report 7478100-1 (Version None)
Quarter: 2011Q2

REPORT INFORMATION
  Report Type: 
  Country: None (occurrence: None)
  Receive Date: 20110511
  Receipt Date: 20110511
  Transmission Date: 20111010
  Serious: No
  Sender: FDA-Public Use
  Company Number: None

PATIENT
  Sex: Female
  Weight: 93.6 kg

DRUGS (1)
  1. PACLITAXEL [Suspect]
     Indication: LUNG NEOPLASM MALIGNANT
     Dosage: 90MG WEEKLY INTRAVENOUS 041
     Route: 042
     Dates: start: 20110301

REACTIONS (3)
  - FLUSHING [None]
  - INFUSION RELATED REACTION [None]
  - SENSORY DISTURBANCE [None]
